FAERS Safety Report 13779224 (Version 1)
Quarter: 2017Q3

REPORT INFORMATION
  Report Type: Spontaneous
  Country: US (occurrence: US)
  Receive Date: 20170721
  Receipt Date: 20170721
  Transmission Date: 20171127
  Serious: Yes (Death, Other)
  Sender: FDA-Public Use
  Company Number: US-BRISTOL-MYERS SQUIBB COMPANY-BMS-2017-062216

PATIENT
  Sex: Female

DRUGS (3)
  1. WARFARIN SODIUM. [Suspect]
     Active Substance: WARFARIN SODIUM
     Indication: THROMBOSIS PROPHYLAXIS
     Route: 065
  2. PREDNISONE. [Concomitant]
     Active Substance: PREDNISONE
     Indication: PRODUCT USED FOR UNKNOWN INDICATION
     Dosage: EVERY OTHER DAY
     Route: 065
  3. WARFARIN SODIUM. [Suspect]
     Active Substance: WARFARIN SODIUM
     Indication: CARDIOVASCULAR DISORDER
     Dosage: 2 MG, BID, SHE CUT THE TABLET IN HALF AND TOOK 1 IN THE MORNING AND 1 IN THE EVENING
     Route: 048

REACTIONS (6)
  - Loss of consciousness [Unknown]
  - Dialysis [Unknown]
  - Myocardial infarction [Fatal]
  - Coma [Recovered/Resolved]
  - Renal impairment [Unknown]
  - Dehydration [Unknown]
